FAERS Safety Report 4951757-2 (Version None)
Quarter: 2006Q1

REPORT INFORMATION
  Report Type: 
  Country: None (occurrence: None)
  Receive Date: 20060323
  Receipt Date: 20060220
  Transmission Date: 20060701
  Serious: Yes (Other)
  Sender: FDA-Public Use
  Company Number: DE-GLAXOSMITHKLINE-D0048778A

PATIENT
  Age: 40 Year
  Sex: Female
  Weight: 69 kg

DRUGS (5)
  1. PURINETHOL [Suspect]
     Indication: CROHN'S DISEASE
     Dosage: 50MG UNKNOWN
     Route: 048
     Dates: start: 20050901
  2. AUGMENTIN '125' [Suspect]
     Dosage: 625MG UNKNOWN
     Route: 048
     Dates: start: 20060110, end: 20060124
  3. URBASON [Concomitant]
     Indication: CROHN'S DISEASE
     Dosage: 10MG PER DAY
     Route: 065
  4. MORPHIUM [Concomitant]
     Route: 065
     Dates: start: 20060110, end: 20060124
  5. ACETAMINOPHEN [Concomitant]
     Route: 065
     Dates: start: 20060110, end: 20060124

REACTIONS (3)
  - DIARRHOEA [None]
  - LIPASE INCREASED [None]
  - PANCREATITIS [None]
